FAERS Safety Report 16522519 (Version 1)
Quarter: 2019Q3

REPORT INFORMATION
  Report Type: Spontaneous
  Country: US (occurrence: US)
  Receive Date: 20190703
  Receipt Date: 20190703
  Transmission Date: 20191004
  Serious: No
  Sender: FDA-Public Use
  Company Number: US-PFIZER INC-2019274411

PATIENT
  Age: 73 Year
  Sex: Female
  Weight: 98.88 kg

DRUGS (2)
  1. AMLODIPINE BESILATE [Suspect]
     Active Substance: AMLODIPINE BESYLATE
     Indication: HYPERTENSION
     Dosage: UNK, ALTERNATE DAY (EVERY OTHER DAY)
  2. AMLODIPINE BESILATE [Suspect]
     Active Substance: AMLODIPINE BESYLATE
     Indication: ANGINA PECTORIS

REACTIONS (8)
  - Scar [Unknown]
  - Rash [Unknown]
  - Malaise [Unknown]
  - Abdominal discomfort [Unknown]
  - Abdominal pain upper [Unknown]
  - Blood pressure inadequately controlled [Unknown]
  - Chest pain [Unknown]
  - Intentional product misuse [Unknown]
